FAERS Safety Report 18511787 (Version 1)
Quarter: 2020Q4

REPORT INFORMATION
  Report Type: Report from Study
  Country: US (occurrence: US)
  Receive Date: 20201117
  Receipt Date: 20201117
  Transmission Date: 20210114
  Serious: Yes (Hospitalization)
  Sender: FDA-Public Use
  Company Number: US-JNJFOC-20160116391

PATIENT
  Age: 89 Year
  Sex: Male
  Weight: 62.65 kg

DRUGS (9)
  1. PREDNSIONE [Suspect]
     Active Substance: PREDNISONE
     Indication: PROSTATE CANCER METASTATIC
     Route: 048
     Dates: start: 20150417, end: 20160106
  2. ABIRATERONE ACETATE. [Suspect]
     Active Substance: ABIRATERONE ACETATE
     Indication: PROSTATE CANCER METASTATIC
     Route: 048
     Dates: start: 20150417, end: 20160106
  3. COZAAR [Concomitant]
     Active Substance: LOSARTAN POTASSIUM
     Indication: HYPERTENSION
     Route: 048
     Dates: start: 2010, end: 20160105
  4. PHENAZOPYRIDINE HCL [Concomitant]
     Active Substance: PHENAZOPYRIDINE HYDROCHLORIDE
     Indication: DYSURIA
     Route: 048
     Dates: start: 20150409
  5. ALBUTEROL. [Concomitant]
     Active Substance: ALBUTEROL
     Indication: CHRONIC RESPIRATORY DISEASE
  6. APALUTAMIDE [Suspect]
     Active Substance: APALUTAMIDE
     Indication: PROSTATE CANCER METASTATIC
     Route: 048
     Dates: start: 20150417, end: 20160106
  7. CALTRATE WITH VITAMIN D [Concomitant]
     Active Substance: CALCIUM CARBONATE\CHOLECALCIFEROL
     Indication: OSTEOPOROSIS PROPHYLAXIS
     Route: 048
     Dates: start: 20150319
  8. OMEPRAZOLE. [Concomitant]
     Active Substance: OMEPRAZOLE
     Route: 065
  9. COZAAR [Concomitant]
     Active Substance: LOSARTAN POTASSIUM
     Route: 048
     Dates: start: 20160106

REACTIONS (1)
  - Pneumonia [Recovered/Resolved]

NARRATIVE: CASE EVENT DATE: 20160106
